FAERS Safety Report 20207448 (Version 7)
Quarter: 2024Q1

REPORT INFORMATION
  Report Type: Spontaneous
  Country: US (occurrence: US)
  Receive Date: 20211220
  Receipt Date: 20240304
  Transmission Date: 20240409
  Serious: Yes (Hospitalization, Other)
  Sender: FDA-Public Use
  Company Number: US-PFIZER INC-202101742425

PATIENT
  Age: 71 Year
  Sex: Female
  Weight: 102.06 kg

DRUGS (2)
  1. IBRANCE [Suspect]
     Active Substance: PALBOCICLIB
     Indication: Breast cancer stage IV
     Dosage: 125 MG (3 WEEK PERIOD OF IBRANCE)
  2. IBRANCE [Suspect]
     Active Substance: PALBOCICLIB
     Dosage: TAKE 1 TAB DAILY WITH FOOD AS DIRECTED FOR 21 DAYS FOLLOWED BY 7 DAYS OFF
     Route: 048

REACTIONS (4)
  - Pulmonary thrombosis [Unknown]
  - Platelet count decreased [Unknown]
  - Red blood cell count decreased [Unknown]
  - Dizziness [Not Recovered/Not Resolved]
